FAERS Safety Report 9028309 (Version 1)
Quarter: 2013Q1

REPORT INFORMATION
  Report Type: Spontaneous
  Country: US (occurrence: US)
  Receive Date: 20130124
  Receipt Date: 20130124
  Transmission Date: 20140127
  Serious: No
  Sender: FDA-Public Use
  Company Number: US-BAUSCH-2012BL003192

PATIENT
  Age: 69 Year
  Sex: Female

DRUGS (4)
  1. ALAWAY [Suspect]
     Indication: EYE ALLERGY
     Route: 047
     Dates: start: 2011, end: 201205
  2. ALAWAY [Suspect]
     Route: 047
     Dates: start: 20120502, end: 20120513
  3. ALAWAY [Suspect]
     Route: 047
     Dates: start: 20120514, end: 20120515
  4. SYSTANE [Concomitant]
     Indication: DRY EYE
     Route: 047

REACTIONS (2)
  - Instillation site pain [Recovered/Resolved]
  - Instillation site lacrimation [Recovered/Resolved]
